FAERS Safety Report 9862562 (Version 1)
Quarter: 2014Q1

REPORT INFORMATION
  Report Type: Spontaneous
  Country: IT (occurrence: IT)
  Receive Date: 20140203
  Receipt Date: 20140203
  Transmission Date: 20141002
  Serious: Yes (Hospitalization, Other)
  Sender: FDA-Public Use
  Company Number: IT-PFIZER INC-2014027745

PATIENT
  Age: 52 Year
  Sex: Male

DRUGS (1)
  1. RELPAX [Suspect]
     Indication: HEADACHE
     Dosage: 20 MG, DAILY
     Route: 048
     Dates: start: 20130105, end: 20131213

REACTIONS (2)
  - Drug abuse [Unknown]
  - Headache [Recovering/Resolving]
